FAERS Safety Report 5108789-3 (Version None)
Quarter: 2006Q3

REPORT INFORMATION
  Report Type: 
  Country: None (occurrence: None)
  Receive Date: 20060920
  Receipt Date: 20060610
  Transmission Date: 20061208
  Serious: Yes (Other)
  Sender: FDA-Public Use
  Company Number: FR-BRISTOL-MYERS SQUIBB COMPANY-13409677

PATIENT
  Sex: Male

DRUGS (2)
  1. SUSTIVA [Suspect]
     Indication: HIV INFECTION
     Dosage: THERAPY INTERRUPTED ON 10-JUN-2006, RESTARTED ON 17-JUL-2006 AND DISCONTINUED ON 20-JUL-2006
     Route: 048
     Dates: start: 20060601, end: 20060720
  2. KIVEXA [Suspect]
     Indication: HIV INFECTION
     Route: 048
     Dates: start: 20060601, end: 20060610

REACTIONS (5)
  - ANXIETY [None]
  - ASTHENIA [None]
  - HERPES ZOSTER [None]
  - PRURITUS [None]
  - RASH MACULO-PAPULAR [None]
